FAERS Safety Report 10204834 (Version 1)
Quarter: 2014Q2

REPORT INFORMATION
  Report Type: Spontaneous
  Country: FR (occurrence: None)
  Receive Date: 20140527
  Receipt Date: 20140527
  Transmission Date: 20141212
  Serious: Yes (Hospitalization)
  Sender: FDA-Public Use
  Company Number: 2348301

PATIENT
  Age: 60 Year
  Sex: Male

DRUGS (27)
  1. CARBOPLATIN [Suspect]
     Indication: PRODUCT USED FOR UNKNOWN INDICATION
     Dosage: 330 MG MILLIGRAMS, CYCLICAL, INTRAVENOUS (NOT OTHERWISE SPECIFIED)?
     Route: 042
     Dates: start: 201402
  2. CARBOPLATIN [Suspect]
     Indication: PRODUCT USED FOR UNKNOWN INDICATION
     Dosage: 330 MG MILLIGRAMS, CYCLICAL, INTRAVENOUS (NOT OTHERWISE SPECIFIED)?
     Route: 042
     Dates: start: 201402
  3. DOCETAXEL [Suspect]
     Indication: PRODUCT USED FOR UNKNOWN INDICATION
     Dosage: 110 MG MILLIHGRAMS, CYCLICAL, INTRAVENOUS (NOT OTHERWISE SPECIFIED)?
     Route: 042
     Dates: start: 201402
  4. DOCETAXEL [Suspect]
     Indication: PRODUCT USED FOR UNKNOWN INDICATION
     Dosage: 110 MG MILLIHGRAMS, CYCLICAL, INTRAVENOUS (NOT OTHERWISE SPECIFIED)?
     Route: 042
     Dates: start: 201402
  5. 5 FU [Suspect]
     Indication: PRODUCT USED FOR UNKNOWN INDICATION
     Dosage: 1075 MG MILLIGRAMS INTRAVENOUS (NOT OTHERWISE SPECIFIED)?
     Route: 042
     Dates: start: 201402
  6. 5 FU [Suspect]
     Indication: PRODUCT USED FOR UNKNOWN INDICATION
     Dosage: 1075 MG MILLIGRAMS INTRAVENOUS (NOT OTHERWISE SPECIFIED)?
     Route: 042
     Dates: start: 201402
  7. EMEND [Suspect]
     Indication: PREMEDICATION
     Dates: start: 201402
  8. ZOPHREN [Suspect]
     Indication: PREMEDICATION
     Dosage: SINGLE DOSE?
     Dates: start: 201402
  9. METHYLPREDNISOLONE [Suspect]
     Indication: PREMEDICATION
     Dosage: SINGLE DOSE?
     Dates: start: 201402
  10. SOLUPRED [Suspect]
     Indication: PRODUCT USED FOR UNKNOWN INDICATION
  11. CELLCEPT [Suspect]
     Indication: PRODUCT USED FOR UNKNOWN INDICATION
  12. ZARZIO [Concomitant]
  13. MOPRAL [Concomitant]
  14. ATENOLOL [Concomitant]
  15. AMLODIPINE [Concomitant]
  16. COMBIGAN [Concomitant]
  17. TRIATEC [Concomitant]
  18. IMOVANE [Concomitant]
  19. TRUSOPT [Concomitant]
  20. MAG 2 [Concomitant]
  21. VITAMIN C [Concomitant]
  22. SPECIAFOLDINE [Concomitant]
  23. ALDACTONE [Concomitant]
  24. DOLIPRANE [Concomitant]
  25. LYRICA [Concomitant]
  26. HYPERIUM [Concomitant]
  27. ALPRAZOLAM [Concomitant]

REACTIONS (6)
  - Atrial fibrillation [None]
  - Lymphopenia [None]
  - Febrile neutropenia [None]
  - Diarrhoea [None]
  - Hypokalaemia [None]
  - Thrombocytopenia [None]
